FAERS Safety Report 17258381 (Version 1)
Quarter: 2020Q1

REPORT INFORMATION
  Report Type: Report from Study
  Country: None (occurrence: US)
  Receive Date: 20200110
  Receipt Date: 20200110
  Transmission Date: 20200409
  Serious: Yes (Disabling, Other)
  Sender: FDA-Public Use
  Company Number: US-ABBVIE-20K-163-3223293-00

PATIENT
  Sex: Male

DRUGS (2)
  1. HUMIRA [Suspect]
     Active Substance: ADALIMUMAB
     Dosage: CITRATE FREE
     Route: 058
  2. HUMIRA [Suspect]
     Active Substance: ADALIMUMAB
     Indication: RHEUMATOID ARTHRITIS
     Dosage: CITRATE FREE
     Route: 058
     Dates: start: 2017

REACTIONS (9)
  - Inguinal hernia [Recovered/Resolved]
  - Localised infection [Recovered/Resolved]
  - Ankle arthroplasty [Recovered/Resolved]
  - Accident at work [Unknown]
  - Skin discolouration [Recovered/Resolved]
  - Injection site pain [Recovered/Resolved]
  - Muscle contracture [Not Recovered/Not Resolved]
  - Osteoarthritis [Unknown]
  - Rheumatoid arthritis [Not Recovered/Not Resolved]

NARRATIVE: CASE EVENT DATE: 2018
